FAERS Safety Report 4819582-0 (Version None)
Quarter: 2005Q4

REPORT INFORMATION
  Report Type: 
  Country: None (occurrence: None)
  Receive Date: 20051102
  Receipt Date: 20051102
  Transmission Date: 20060501
  Serious: Yes (Hospitalization)
  Sender: FDA-Public Use
  Company Number: None

PATIENT
  Sex: Male

DRUGS (2)
  1. GEMFIBROZIL [Suspect]
     Dosage: 600 MG QD
     Dates: start: 20050426, end: 20050520
  2. SIMVASTATIN [Suspect]
     Dosage: 80 MG QD
     Dates: start: 20050412, end: 20050520

REACTIONS (1)
  - RHABDOMYOLYSIS [None]
